FAERS Safety Report 6403270-3 (Version None)
Quarter: 2009Q4

REPORT INFORMATION
  Report Type: 
  Country: None (occurrence: None)
  Receive Date: 20091013
  Receipt Date: 20091006
  Transmission Date: 20100525
  Serious: Yes (Hospitalization)
  Sender: FDA-Public Use
  Company Number: GXKR2009DK08478

PATIENT
  Age: 57 Year
  Sex: Female

DRUGS (4)
  1. ACLASTA (ZOLEDRONATE), 0.05MG/ML [Suspect]
     Indication: OSTEOPOROSIS
     Dosage: 5 MG,  ONCE/SINGLE, INTRAVENOUS
     Route: 042
     Dates: start: 20090625
  2. ALENDRONATE SODIUM [Suspect]
     Indication: OSTEOPOROSIS PROPHYLAXIS
     Dosage: 70 MG, ONCE/SINGLE, ORAL
     Route: 048
     Dates: start: 20090616, end: 20090617
  3. PREDNISOLONE [Concomitant]
  4. METHOTREXAT (METHOTREXATE) [Concomitant]

REACTIONS (1)
  - PYELONEPHRITIS [None]
